FAERS Safety Report 8609039-3 (Version None)
Quarter: 2012Q3

REPORT INFORMATION
  Report Type: 
  Country: None (occurrence: None)
  Receive Date: 20120821
  Receipt Date: 19881101
  Transmission Date: 20120928
  Serious: Yes (Other)
  Sender: FDA-Public Use
  Company Number: US-ROCHE-1098855

PATIENT
  Sex: Male

DRUGS (1)
  1. ACTIVASE [Suspect]
     Indication: VASCULAR OPERATION

REACTIONS (2)
  - MUSCULOSKELETAL CHEST PAIN [None]
  - PNEUMOTHORAX [None]
